FAERS Safety Report 8600259 (Version 3)
Quarter: 2014Q1

REPORT INFORMATION
  Report Type: Spontaneous
  Country: US (occurrence: US)
  Receive Date: 20120606
  Receipt Date: 20140131
  Transmission Date: 20141002
  Serious: Yes (Hospitalization, Disabling)
  Sender: FDA-Public Use
  Company Number: US-ASTRAZENECA-2012SE35011

PATIENT
  Age: 55 Year
  Sex: Female
  Weight: 87.5 kg

DRUGS (43)
  1. NEXIUM [Suspect]
     Indication: GASTROOESOPHAGEAL REFLUX DISEASE
     Route: 048
  2. NEXIUM [Suspect]
     Indication: GASTROOESOPHAGEAL REFLUX DISEASE
     Route: 048
  3. NEXIUM [Suspect]
     Indication: GASTROOESOPHAGEAL REFLUX DISEASE
     Route: 048
     Dates: start: 200301
  4. NEXIUM [Suspect]
     Indication: GASTROOESOPHAGEAL REFLUX DISEASE
     Route: 048
     Dates: start: 200301
  5. NEXIUM [Suspect]
     Indication: GASTROOESOPHAGEAL REFLUX DISEASE
     Route: 048
     Dates: start: 20030919
  6. NEXIUM [Suspect]
     Indication: GASTROOESOPHAGEAL REFLUX DISEASE
     Route: 048
     Dates: start: 20030919
  7. RANITIDINE [Concomitant]
     Indication: GASTRITIS
     Route: 048
     Dates: start: 20110819
  8. ESTRADIOL [Concomitant]
     Indication: HORMONE REPLACEMENT THERAPY
     Route: 048
  9. HYDROCHLOROTHIAZIDE [Concomitant]
     Indication: BLOOD PRESSURE ABNORMAL
     Route: 048
     Dates: start: 20040105
  10. HYDROCHLOROTHIAZIDE [Concomitant]
     Indication: BLOOD PRESSURE ABNORMAL
     Route: 048
     Dates: start: 20031106
  11. COZAAR [Concomitant]
     Indication: BLOOD PRESSURE ABNORMAL
     Route: 048
     Dates: start: 20110510
  12. PRAVASTATIN [Concomitant]
     Indication: HIGH DENSITY LIPOPROTEIN
     Route: 048
  13. DICLOFENAC [Concomitant]
     Indication: MUSCULOSKELETAL PAIN
     Route: 048
     Dates: start: 201302
  14. TYLENOL [Concomitant]
  15. LOPERAMIDE [Concomitant]
     Indication: DIARRHOEA
     Dosage: AS NEEDED
  16. HYDROCODON/ACETAMINOPHEN [Concomitant]
     Indication: PYREXIA
     Dosage: 5/325 1-2 TABLETS EVERY 4 TO   HOURS AS NEEDED
     Dates: start: 20120608
  17. HYDROCODON/ACETAMINOPHEN [Concomitant]
     Indication: PAIN
     Dosage: 5/325 1-2 TABLETS EVERY 4 TO   HOURS AS NEEDED
     Dates: start: 20120608
  18. ESTROGENS CONJUGATED [Concomitant]
     Route: 048
     Dates: start: 20010926
  19. ESTROGENS CONJUGATED [Concomitant]
     Route: 048
     Dates: start: 20040624
  20. ESTROGENS CONJUGATED [Concomitant]
     Route: 048
     Dates: start: 20010102
  21. IBUPROFEN [Concomitant]
     Indication: TOOTHACHE
     Dosage: 800 MG EVERY 8 HOURS WITH FOOD
     Route: 048
     Dates: start: 20130503
  22. IBUPROFEN [Concomitant]
     Indication: TOOTHACHE
     Route: 048
     Dates: start: 20030311
  23. NITROFURAN [Concomitant]
     Route: 048
     Dates: start: 20040526
  24. PREDNISONE [Concomitant]
     Route: 048
     Dates: start: 20040208
  25. PREDNISONE [Concomitant]
     Route: 048
     Dates: start: 20010822
  26. SPIRONOLACTONE/HCTZ [Concomitant]
     Dosage: 25/25 EVERY DAY
     Route: 048
     Dates: start: 20041103
  27. CLOTRIMAZOLE [Concomitant]
     Route: 048
     Dates: start: 20041111
  28. METOPROLOL SUCCINATE [Concomitant]
     Route: 048
     Dates: start: 20041130
  29. METOPROLOL SUCCINATE [Concomitant]
     Route: 048
     Dates: start: 20060102
  30. FLUCONAZOLE [Concomitant]
     Route: 048
     Dates: start: 20050823
  31. FLUCONAZOLE [Concomitant]
     Route: 048
     Dates: start: 20030113
  32. CYCLOBENZAPRINE [Concomitant]
     Route: 048
     Dates: start: 20030301
  33. ENALAPRIL [Concomitant]
  34. MONTELUKAST [Concomitant]
     Route: 048
     Dates: start: 20031125
  35. ATENOLOL [Concomitant]
     Route: 048
     Dates: start: 20010219
  36. ATENOLOL [Concomitant]
     Route: 048
     Dates: start: 20030604
  37. NAPROXEN [Concomitant]
     Route: 048
     Dates: start: 20030301
  38. BACLOFEN [Concomitant]
     Route: 048
     Dates: start: 20021014
  39. PANTOPRAZOLE [Concomitant]
     Indication: GASTRIC DISORDER
     Route: 048
     Dates: start: 20010904
  40. CHLORPHEN/PSEUDOOE SR [Concomitant]
     Indication: SINUS DISORDER
     Dosage: 8/120 MG TWO TIMES DAILY
     Route: 048
     Dates: start: 20021014
  41. CHLORPHEN/PSEUDOOE SR [Concomitant]
     Indication: NASAL CONGESTION
     Dosage: 8/120 MG TWO TIMES DAILY
     Route: 048
     Dates: start: 20021014
  42. CHLORPHEN/PSEUDOOE SR [Concomitant]
     Indication: HYPERSENSITIVITY
     Dosage: 8/120 MG TWO TIMES DAILY
     Route: 048
     Dates: start: 20021014
  43. ESTERIFIED ESTROGEN [Concomitant]
     Route: 048
     Dates: start: 20020205

REACTIONS (10)
  - Arthritis [Unknown]
  - Nasal disorder [Unknown]
  - Osteoporosis [Unknown]
  - Multiple fractures [Unknown]
  - Limb injury [Unknown]
  - Bone pain [Unknown]
  - Vitamin D deficiency [Unknown]
  - Tendon injury [Unknown]
  - Abasia [Unknown]
  - Spinal osteoarthritis [Unknown]
